FAERS Safety Report 8126066-3 (Version None)
Quarter: 2012Q1

REPORT INFORMATION
  Report Type: 
  Country: None (occurrence: None)
  Receive Date: 20120209
  Receipt Date: 20120127
  Transmission Date: 20120608
  Serious: Yes (Other)
  Sender: FDA-Public Use
  Company Number: PHFR2012GB000901

PATIENT
  Sex: Male

DRUGS (8)
  1. LORAZEPAM [Concomitant]
     Dosage: UNK 1-2 MGS, AS REQUIRED
  2. ARIPIPRAZOLE [Concomitant]
     Dosage: UNK UKN, UNK
  3. HALOPERIDOL [Concomitant]
     Dosage: 5 MG, QD
  4. OLANZAPINE [Concomitant]
     Dosage: 20 MG (5 MG IN MORNING AND 15 MG NOCTURNAL)
  5. METFORMIN HCL [Concomitant]
     Dosage: 500 MG, TID
  6. OLANZAPINE [Concomitant]
     Dosage: 15 MG, UNK
  7. CLOZARIL [Suspect]
     Indication: SCHIZOPHRENIA
     Dosage: MODEST DOSE BETWEEN 200 MG TO 300 MG
     Route: 048
     Dates: start: 19920622
  8. SIMVASTATIN [Concomitant]
     Dosage: 40 MG, UNK

REACTIONS (7)
  - SCHIZOPHRENIA [None]
  - TYPE 2 DIABETES MELLITUS [None]
  - NEUTROPENIA [None]
  - PSYCHOTIC DISORDER [None]
  - VIRAL INFECTION [None]
  - HALLUCINATION, AUDITORY [None]
  - WEIGHT INCREASED [None]
